FAERS Safety Report 6998241-2 (Version None)
Quarter: 2010Q3

REPORT INFORMATION
  Report Type: 
  Country: None (occurrence: None)
  Receive Date: 20100920
  Receipt Date: 20080515
  Transmission Date: 20110219
  Serious: No
  Sender: FDA-Public Use
  Company Number: US-ASTRAZENECA-2008UW08684

PATIENT
  Age: 15647 Day
  Sex: Female
  Weight: 128.4 kg

DRUGS (18)
  1. SEROQUEL [Suspect]
     Indication: BIPOLAR DISORDER
     Route: 048
     Dates: start: 20040313, end: 20070101
  2. SEROQUEL [Suspect]
     Route: 048
     Dates: start: 20040321, end: 20070101
  3. ABILIFY (ARIPIPARAZOLE) [Concomitant]
     Dosage: 15MG, 30MG
     Dates: start: 20070101, end: 20070201
  4. GEODON [Concomitant]
     Dosage: 120MG, 180MG
     Dates: start: 20040312
  5. GEODON [Concomitant]
     Dosage: 40-180 MG DAILY
     Route: 048
     Dates: start: 20040313, end: 20070101
  6. HALDOL [Concomitant]
     Dates: start: 19920110
  7. RISPERDAL [Concomitant]
     Dosage: BEDTIME
     Dates: start: 20040201
  8. THORAZINE (CHLOPROMAZINE) [Concomitant]
     Dates: start: 19920101, end: 20040101
  9. THORAZINE (CHLOPROMAZINE) [Concomitant]
     Dates: start: 19920418
  10. PAMELOR [Concomitant]
     Dates: start: 19810101, end: 19900101
  11. PROLIXIN [Concomitant]
  12. TEGRETOL [Concomitant]
     Dosage: MORNING
  13. VALIUM [Concomitant]
  14. DEPAKOTE ER [Concomitant]
     Dosage: 500-1500  MG
     Route: 048
     Dates: start: 20040323
  15. ATIVAN [Concomitant]
     Indication: SLEEP DISORDER
     Route: 048
     Dates: start: 20040313
  16. HYDROCHLOROTHIAZIDE [Concomitant]
     Dates: start: 19980305
  17. ZOCOR [Concomitant]
     Dates: start: 20040313
  18. LEVOXYL [Concomitant]
     Dates: start: 20040313

REACTIONS (2)
  - DIABETES MELLITUS [None]
  - EMOTIONAL DISORDER [None]
